FAERS Safety Report 9848410 (Version 1)
Quarter: 2014Q1

REPORT INFORMATION
  Report Type: Spontaneous
  Country: None (occurrence: None)
  Receive Date: 20140127
  Receipt Date: 20140127
  Transmission Date: 20141002
  Serious: Yes (Other)
  Sender: FDA-Public Use
  Company Number: None

PATIENT
  Age: 14 Month
  Sex: Male

DRUGS (6)
  1. FLUOCINOLONE [Suspect]
     Indication: ECZEMA
     Dosage: APPLY SMAL AMT. BID TOPICAL
     Route: 061
     Dates: start: 20140124, end: 20140125
  2. PREDNISONE [Concomitant]
  3. PEPCID [Concomitant]
  4. NIASPAN [Concomitant]
  5. METFORMIN [Concomitant]
  6. VITAMIN D [Concomitant]

REACTIONS (1)
  - Medication error [None]
